FAERS Safety Report 5512153-2 (Version None)
Quarter: 2007Q4

REPORT INFORMATION
  Report Type: 
  Country: None (occurrence: None)
  Receive Date: 20071112
  Receipt Date: 20071030
  Transmission Date: 20080405
  Serious: Yes (Other)
  Sender: FDA-Public Use
  Company Number: US-SHR-US-2007-041116

PATIENT
  Age: 53 Year
  Sex: Female

DRUGS (4)
  1. BETASERON [Suspect]
     Route: 058
     Dates: start: 19990219, end: 20050719
  2. BETASERON [Suspect]
     Route: 058
     Dates: start: 20050801, end: 20061006
  3. BETASERON [Suspect]
     Route: 058
     Dates: start: 20061022, end: 20070420
  4. BETASERON [Suspect]
     Dosage: 8 MIU, EVERY 2D
     Route: 058
     Dates: start: 20070905

REACTIONS (2)
  - INJECTION SITE PAIN [None]
  - SYNCOPE [None]
